FAERS Safety Report 6529774-0 (Version None)
Quarter: 2010Q1

REPORT INFORMATION
  Report Type: 
  Country: None (occurrence: None)
  Receive Date: 20100107
  Receipt Date: 20100104
  Transmission Date: 20100710
  Serious: Yes (Other)
  Sender: FDA-Public Use
  Company Number: FR-BRISTOL-MYERS SQUIBB COMPANY-14921100

PATIENT
  Age: 27 Year
  Sex: Female

DRUGS (2)
  1. SUSTIVA [Suspect]
     Indication: HIV INFECTION
     Route: 048
     Dates: start: 20091113, end: 20091125
  2. TRUVADA [Suspect]
     Indication: HIV INFECTION
     Dosage: 1DF=200MG/245MG
     Dates: start: 20091113, end: 20091125

REACTIONS (3)
  - LYMPHADENOPATHY [None]
  - PYREXIA [None]
  - RASH [None]
